FAERS Safety Report 8648892 (Version 2)
Quarter: 2012Q4

REPORT INFORMATION
  Report Type: 
  Country: ES (occurrence: ES)
  Receive Date: 20120704
  Receipt Date: 20121123
  Transmission Date: 20130627
  Serious: Yes (Other)
  Sender: FDA-Public Use
  Company Number: ES-RANBAXY-2012RR-57484

PATIENT

DRUGS (1)
  1. CLAMOXYL [Suspect]
     Dosage: 500 mg, UNK
     Route: 048

REACTIONS (1)
  - Drug eruption [Unknown]
